FAERS Safety Report 9003167 (Version 3)
Quarter: 2013Q3

REPORT INFORMATION
  Report Type: Report from Study
  Country: BR (occurrence: BR)
  Receive Date: 20130108
  Receipt Date: 20130827
  Transmission Date: 20140515
  Serious: Yes (Other)
  Sender: FDA-Public Use
  Company Number: BR-ABBOTT-13P-020-1031448-00

PATIENT
  Age: 53 Year
  Sex: Male
  Weight: 78 kg

DRUGS (12)
  1. HUMIRA [Suspect]
     Indication: RHEUMATOID ARTHRITIS
     Route: 058
     Dates: start: 20120507
  2. UNKNOWN ANTIBIOTIC [Suspect]
     Indication: PRODUCT USED FOR UNKNOWN INDICATION
  3. UNKNOWN ANTI INFLAMMATORY [Suspect]
     Indication: PRODUCT USED FOR UNKNOWN INDICATION
  4. LERCANIDIPINE HYDROCHLORIDE [Concomitant]
     Indication: HYPERTENSION
     Route: 048
     Dates: end: 201304
  5. DIAMICRON [Concomitant]
     Indication: DIABETES MELLITUS MANAGEMENT
     Dosage: 30 MG DAILY
     Route: 048
     Dates: end: 201304
  6. PANTOPRAZOLE [Concomitant]
     Indication: GASTRIC DISORDER
     Dosage: IN FASTING
     Route: 048
     Dates: end: 201304
  7. ACETYLSALICYLIC ACID [Concomitant]
     Indication: PRODUCT USED FOR UNKNOWN INDICATION
     Dosage: 1 TABLET DAILY
     Route: 048
     Dates: end: 201304
  8. ESCITALOPRAM OXALATE [Concomitant]
     Indication: PRODUCT USED FOR UNKNOWN INDICATION
     Dosage: 10 MG DAILY
     Route: 048
     Dates: end: 201304
  9. LASIX [Concomitant]
     Indication: PRODUCT USED FOR UNKNOWN INDICATION
     Dosage: 40 MG DAILY
     Route: 048
     Dates: end: 201304
  10. TYLEX [Concomitant]
     Indication: PRODUCT USED FOR UNKNOWN INDICATION
     Dosage: 30 MG DAILY
     Route: 048
     Dates: end: 201304
  11. ATENOLOL [Concomitant]
     Indication: HYPERTENSION
     Route: 048
     Dates: start: 20121109
  12. NITRENDIPINO [Concomitant]
     Indication: HYPERTENSION
     Route: 048
     Dates: start: 20121109

REACTIONS (10)
  - Diabetic foot [Unknown]
  - Klebsiella infection [Unknown]
  - Nosocomial infection [Unknown]
  - Cardiac arrest [Unknown]
  - Renal failure [Unknown]
  - Renal failure chronic [Not Recovered/Not Resolved]
  - Leg amputation [Unknown]
  - Weight decreased [Unknown]
  - Immunodeficiency [Unknown]
  - Arthritis [Not Recovered/Not Resolved]
